FAERS Safety Report 5615082-9 (Version None)
Quarter: 2008Q1

REPORT INFORMATION
  Report Type: 
  Country: None (occurrence: None)
  Receive Date: 20080206
  Receipt Date: 20070116
  Transmission Date: 20080703
  Serious: No
  Sender: FDA-Public Use
  Company Number: A0635861A

PATIENT
  Age: 45 Year
  Sex: Male

DRUGS (2)
  1. ARIXTRA [Suspect]
     Indication: DRUG USE FOR UNKNOWN INDICATION
     Route: 058
     Dates: start: 20070101
  2. UNKNOWN [Concomitant]

REACTIONS (2)
  - INJECTION SITE BRUISING [None]
  - INJECTION SITE PAIN [None]
